FAERS Safety Report 4546097-X (Version None)
Quarter: 2005Q1

REPORT INFORMATION
  Report Type: 
  Country: None (occurrence: None)
  Receive Date: 20050103
  Receipt Date: 20041213
  Transmission Date: 20050727
  Serious: Yes (Hospitalization, Other)
  Sender: FDA-Public Use
  Company Number: US_991029935

PATIENT
  Age: 21 Year
  Sex: Male
  Weight: 82 kg

DRUGS (22)
  1. ZYPREXA [Suspect]
     Indication: BIPOLAR DISORDER
     Dosage: 20 MG/DAY
     Dates: start: 19981205, end: 20001001
  2. HUMALOG [Concomitant]
  3. DEPAKOTE [Concomitant]
  4. KLONOPIN [Concomitant]
  5. LAMICTAL [Concomitant]
  6. CELEXA [Concomitant]
  7. TEMAZEPAM [Concomitant]
  8. CELECOXIB [Concomitant]
  9. CLINDAMYCIN HCL [Concomitant]
  10. HYDROCODONE BITARTRATE [Concomitant]
  11. METHYLPREDNISOLONE [Concomitant]
  12. CEPHALEXIN [Concomitant]
  13. ERYTHROMYCIN [Concomitant]
  14. GUAIFENESIN (GUAIFENESIN L.A.) [Concomitant]
  15. DISOPYRAMIDE PHOSPHATE [Concomitant]
  16. CAPTOPRIL [Concomitant]
  17. CIPROFLOXACIN [Concomitant]
  18. OMEPRAZOLE [Concomitant]
  19. NYSTATIN [Concomitant]
  20. AZITHROMYCIN [Concomitant]
  21. LORTAB [Concomitant]
  22. FLUVOXAMINE MALEATE [Concomitant]

REACTIONS (18)
  - ABDOMINAL PAIN [None]
  - ABNORMAL BEHAVIOUR [None]
  - ACCIDENTAL NEEDLE STICK [None]
  - ALCOHOL POISONING [None]
  - ASTHENIA [None]
  - CONJUNCTIVITIS [None]
  - DIABETES MELLITUS INADEQUATE CONTROL [None]
  - DIABETES MELLITUS INSULIN-DEPENDENT [None]
  - DIABETIC KETOACIDOSIS [None]
  - DRUG DEPENDENCE [None]
  - FEELING ABNORMAL [None]
  - FLAT AFFECT [None]
  - HYPERPHAGIA [None]
  - LEGAL PROBLEM [None]
  - MANIA [None]
  - MYALGIA [None]
  - SINUS TACHYCARDIA [None]
  - VENTRICULAR HYPERTROPHY [None]
